FAERS Safety Report 5596077-0 (Version None)
Quarter: 2008Q1

REPORT INFORMATION
  Report Type: 
  Country: None (occurrence: None)
  Receive Date: 20080118
  Receipt Date: 20080107
  Transmission Date: 20080703
  Serious: Yes (Congenital Anomaly)
  Sender: FDA-Public Use
  Company Number: ES-ROCHE-528699

PATIENT
  Age: 40 Year
  Sex: Female
  Weight: 54.5 kg

DRUGS (4)
  1. FUZEON [Suspect]
     Route: 058
     Dates: start: 20070224
  2. SAQUINAVIR [Suspect]
     Dosage: DOSAGE REGIMEN: 1000/12 H
     Route: 048
     Dates: start: 20070224
  3. DDI [Suspect]
     Dosage: DOSAGE REGIMEN: 250/24 H
     Route: 048
     Dates: start: 20070814
  4. LOPINAVIR [Suspect]
     Dosage: DOSAGE REGIMEN: 2/12 H. DRUG NAME REPORTED: IOPINAVIR.
     Route: 048
     Dates: start: 20070224

REACTIONS (2)
  - HEART DISEASE CONGENITAL [None]
  - TRISOMY 21 [None]
